FAERS Safety Report 10051712 (Version 1)
Quarter: 2014Q2

REPORT INFORMATION
  Report Type: Spontaneous
  Country: NL (occurrence: NL)
  Receive Date: 20140401
  Receipt Date: 20140401
  Transmission Date: 20141212
  Serious: Yes (Other)
  Sender: FDA-Public Use
  Company Number: PHHY2014NL036417

PATIENT
  Sex: Male

DRUGS (1)
  1. ENALAPRIL MALEATE SANDOZ [Suspect]
     Dosage: 20 MG

REACTIONS (3)
  - Fall [Unknown]
  - Dizziness [Unknown]
  - Vision blurred [Unknown]
